FAERS Safety Report 15640263 (Version 1)
Quarter: 2018Q4

REPORT INFORMATION
  Report Type: Spontaneous
  Country: DE (occurrence: DE)
  Receive Date: 20181120
  Receipt Date: 20181120
  Transmission Date: 20190205
  Serious: Yes (Congenital Anomaly)
  Sender: FDA-Public Use
  Company Number: DE-DRREDDYS-GER/GER/18/0105368

PATIENT
  Age: 1 Day
  Sex: Female
  Weight: 3.14 kg

DRUGS (7)
  1. HUMINSULIN [Concomitant]
     Active Substance: INSULIN HUMAN
     Indication: GESTATIONAL DIABETES
     Dosage: 38 [I.E./D ]/ INCREASE FROM 6 IE TO 38 IE/D DURING THE COURSE OF PREGNANCY
     Dates: start: 20180223, end: 20180504
  2. ZELDOX [Suspect]
     Active Substance: ZIPRASIDONE
     Indication: DEPRESSION
     Dosage: 160 [MG/D ]
     Route: 064
     Dates: start: 20170816, end: 20180504
  3. LIPROLOG [Concomitant]
     Active Substance: INSULIN LISPRO
     Indication: GESTATIONAL DIABETES
     Dosage: 16 [I.E./D ]/ FIRST 4 IE/D, IN THE END 16 IE/D.
     Dates: start: 20180308, end: 20180504
  4. AMOXICILLIN. [Concomitant]
     Active Substance: AMOXICILLIN
     Indication: OTITIS MEDIA
     Dosage: 3000 [MG/D ]
     Dates: start: 20180328, end: 20180403
  5. XYLOMETAZOLINE [Concomitant]
     Active Substance: XYLOMETAZOLINE
     Indication: OTITIS MEDIA
     Dates: start: 20180328, end: 20180330
  6. VITAMIN D3 HEVERT [Concomitant]
     Indication: VITAMIN D DEFICIENCY
     Dosage: 3000 [I.E./D ]
     Dates: start: 20170816, end: 20180504
  7. CITALOPRAM [Suspect]
     Active Substance: CITALOPRAM HYDROBROMIDE
     Indication: DEPRESSION
     Dosage: 20 [MG/D ]
     Route: 064
     Dates: start: 20170816, end: 20180504

REACTIONS (5)
  - Neonatal respiratory distress syndrome [Recovered/Resolved]
  - Foetal exposure during pregnancy [Recovered/Resolved]
  - Ventricular septal defect [Unknown]
  - Atrial septal defect [Unknown]
  - Neonatal hypoxia [Recovered/Resolved]

NARRATIVE: CASE EVENT DATE: 20180504
